FAERS Safety Report 6070708-3 (Version None)
Quarter: 2009Q1

REPORT INFORMATION
  Report Type: 
  Country: None (occurrence: None)
  Receive Date: 20090209
  Receipt Date: 20090126
  Transmission Date: 20090719
  Serious: Yes (Hospitalization)
  Sender: FDA-Public Use
  Company Number: GB-ROCHE-610641

PATIENT
  Sex: Female

DRUGS (9)
  1. ORLISTAT [Suspect]
     Indication: OBESITY
     Dosage: STOP DATE: A WEEK AFTER THE 6TH OF DECEMBER.
     Route: 048
     Dates: start: 20080618, end: 20081213
  2. LANSOPRAZOLE [Concomitant]
     Route: 048
  3. BENDROFLUMETHIAZID [Concomitant]
     Dosage: DOSAGE REPORTED 2.5 MG X I DAY
     Route: 048
  4. BISOPROLOL FUMARATE [Concomitant]
     Indication: BLOOD PRESSURE
     Route: 048
  5. FELODIPINE [Concomitant]
     Route: 048
  6. IRBESARTAN [Concomitant]
     Route: 048
  7. SIMVASTATIN [Concomitant]
     Route: 048
  8. PARACETAMOL [Concomitant]
     Indication: PAIN
     Route: 048
  9. ZOPICLONE [Concomitant]
     Indication: SLEEP DISORDER THERAPY
     Route: 048

REACTIONS (2)
  - ARRHYTHMIA [None]
  - LOWER RESPIRATORY TRACT INFECTION [None]
